FAERS Safety Report 24118822 (Version 1)
Quarter: 2024Q3

REPORT INFORMATION
  Report Type: Spontaneous
  Country: TW (occurrence: TW)
  Receive Date: 20240722
  Receipt Date: 20240722
  Transmission Date: 20241016
  Serious: Yes (Other)
  Sender: PFIZER
  Company Number: TW-PFIZER INC-PV202400092991

PATIENT
  Age: 72 Year
  Sex: Male

DRUGS (3)
  1. VORICONAZOLE [Suspect]
     Active Substance: VORICONAZOLE
     Indication: Protothecosis
     Dosage: UNK
  2. ITRACONAZOLE [Suspect]
     Active Substance: ITRACONAZOLE
     Indication: Protothecosis
     Dosage: UNK
  3. ITRACONAZOLE [Suspect]
     Active Substance: ITRACONAZOLE
     Indication: Antifungal treatment

REACTIONS (2)
  - Delirium [Unknown]
  - Drug ineffective [Unknown]
